FAERS Safety Report 9301970 (Version 1)
Quarter: 2013Q2

REPORT INFORMATION
  Report Type: Spontaneous
  Country: DK (occurrence: IT)
  Receive Date: 20130521
  Receipt Date: 20130521
  Transmission Date: 20140414
  Serious: Yes (Life-Threatening)
  Sender: FDA-Public Use
  Company Number: IT-FRI-1000045240

PATIENT
  Age: 80 Year
  Sex: Female

DRUGS (5)
  1. CITALOPRAM [Suspect]
     Indication: ANXIETY
     Route: 048
     Dates: start: 20120101, end: 20130411
  2. CITALOPRAM [Suspect]
     Indication: MEDICATION ERROR
     Dosage: OVERDOSE: 320 MG
     Route: 048
     Dates: start: 20130412, end: 20130412
  3. CARDIRENE [Concomitant]
     Indication: CARDIOMYOPATHY
     Dates: start: 20120101, end: 20130412
  4. NITRODERM TTS [Concomitant]
     Indication: CARDIOMYOPATHY
     Route: 062
     Dates: start: 20120101, end: 20130412
  5. BISOPROLOL FUMERATE [Concomitant]
     Indication: HYPERTENSION
     Route: 048
     Dates: start: 20120101, end: 20130412

REACTIONS (4)
  - Agitation [Recovering/Resolving]
  - Disorientation [Recovering/Resolving]
  - Drug administration error [Unknown]
  - Overdose [Unknown]
